FAERS Safety Report 8114620-4 (Version None)
Quarter: 2012Q1

REPORT INFORMATION
  Report Type: 
  Country: None (occurrence: None)
  Receive Date: 20120206
  Receipt Date: 20120131
  Transmission Date: 20120608
  Serious: Yes (Hospitalization, Other)
  Sender: FDA-Public Use
  Company Number: AT-PFIZER INC-2012026961

PATIENT
  Sex: Male

DRUGS (3)
  1. ALNA RETARD [Concomitant]
     Dosage: 0.4 MG, 1X/DAY
  2. CONCOR PLUS [Concomitant]
     Dosage: 0.5 DF, 1X/DAY
  3. SUTENT [Suspect]
     Indication: METASTATIC RENAL CELL CARCINOMA
     Dosage: 50 MG, CYCLIC, 4 WEEKS TREATMENT, 2 WEEKS REST
     Route: 048
     Dates: start: 20100201, end: 20111201

REACTIONS (3)
  - CEREBROVASCULAR DISORDER [None]
  - VISUAL FIELD DEFECT [None]
  - LEUKOPENIA [None]
